FAERS Safety Report 18375652 (Version 1)
Quarter: 2020Q4

REPORT INFORMATION
  Report Type: Spontaneous
  Country: US (occurrence: US)
  Receive Date: 20201012
  Receipt Date: 20201012
  Transmission Date: 20210114
  Serious: Yes (Hospitalization)
  Sender: FDA-Public Use
  Company Number: None

PATIENT
  Age: 19 Year
  Sex: Female
  Weight: 63.5 kg

DRUGS (3)
  1. MULTIVITAMIN PATCH [Concomitant]
  2. HORMONAL IUD [Concomitant]
  3. KYLEENA [Suspect]
     Active Substance: LEVONORGESTREL
     Dates: start: 20200814

REACTIONS (1)
  - Ovarian cyst [None]

NARRATIVE: CASE EVENT DATE: 20201011
